FAERS Safety Report 23688988 (Version 3)
Quarter: 2024Q2

REPORT INFORMATION
  Report Type: Spontaneous
  Country: US (occurrence: US)
  Receive Date: 20240329
  Receipt Date: 20240412
  Transmission Date: 20240717
  Serious: No
  Sender: FDA-Public Use
  Company Number: US-PURDUE-USA-2024-0308686

PATIENT
  Age: 61 Year
  Sex: Female
  Weight: 84.37 kg

DRUGS (6)
  1. DEXTROAMPHET SACCHARAT, AMPHET ASPARTATE, DEXTROAMPHET SULFATE AND AMP [Suspect]
     Active Substance: AMPHETAMINE ASPARTATE\AMPHETAMINE ASPARTATE MONOHYDRATE\AMPHETAMINE SULFATE\DEXTROAMPHETAMINE SACCHA
     Indication: Chronic fatigue syndrome
     Dosage: 10 MILLIGRAM, TID
     Route: 048
     Dates: start: 202402
  2. CYANOCOBALAMIN [Concomitant]
     Active Substance: CYANOCOBALAMIN
     Indication: Product used for unknown indication
     Dosage: UNK
     Route: 065
  3. CALTRATE [CALCIUM CARBONATE;COLECALCIFEROL] [Concomitant]
     Indication: Product used for unknown indication
     Dosage: UNK
     Route: 065
  4. CENTRUM JR [MINERALS NOS;VITAMINS NOS] [Concomitant]
     Indication: Product used for unknown indication
     Dosage: UNK
     Route: 065
  5. FEXOFENADINE HYDROCHLORIDE\PHENYLEPHRINE HYDROCHLORIDE [Concomitant]
     Active Substance: FEXOFENADINE HYDROCHLORIDE\PHENYLEPHRINE HYDROCHLORIDE
     Indication: Sinus disorder
     Dosage: UNK
     Route: 065
  6. B COMPLEX [AMINOBENZOIC ACID;BIOTIN;CALCIUM PANTOTHENATE;CHOLINE BITAR [Concomitant]
     Indication: Product used for unknown indication
     Dosage: UNK
     Route: 065

REACTIONS (10)
  - Back pain [Unknown]
  - Sensory loss [Unknown]
  - Hypoaesthesia [Unknown]
  - Pain in extremity [Unknown]
  - Dysstasia [Unknown]
  - Condition aggravated [Unknown]
  - Drug screen negative [Unknown]
  - Asthenia [Unknown]
  - Fatigue [Unknown]
  - Drug ineffective [Unknown]

NARRATIVE: CASE EVENT DATE: 20240326
